FAERS Safety Report 8535779-0 (Version None)
Quarter: 2012Q3

REPORT INFORMATION
  Report Type: 
  Country: None (occurrence: None)
  Receive Date: 20120725
  Receipt Date: 20120716
  Transmission Date: 20120928
  Serious: Yes (Death, Other)
  Sender: FDA-Public Use
  Company Number: US-JNJFOC-20120710803

PATIENT
  Age: 70 Year
  Sex: Female

DRUGS (5)
  1. NORTRIPTYLINE HCL [Suspect]
     Indication: PRODUCT USED FOR UNKNOWN INDICATION
     Dosage: AT AN UNSPECIFIED DOSE
     Route: 065
  2. HYDROCODONE BITARTRATE [Suspect]
     Indication: PRODUCT USED FOR UNKNOWN INDICATION
     Dosage: AT AN UNSPECIFIED DOSE
     Route: 065
  3. IBUPROFEN [Suspect]
     Indication: PRODUCT USED FOR UNKNOWN INDICATION
     Dosage: AT AN UNSPECIFIED DOSE
     Route: 065
  4. LYRICA [Suspect]
     Indication: HERPES ZOSTER
     Route: 065
  5. GABAPENTIN [Suspect]
     Indication: PRODUCT USED FOR UNKNOWN INDICATION
     Dosage: AT AN UNSPECIFIED FREQUENCY
     Route: 065

REACTIONS (2)
  - SUICIDAL IDEATION [None]
  - COMPLETED SUICIDE [None]
